FAERS Safety Report 9437431 (Version 1)
Quarter: 2013Q3

REPORT INFORMATION
  Report Type: Spontaneous
  Country: KR (occurrence: None)
  Receive Date: 20130731
  Receipt Date: 20130731
  Transmission Date: 20140515
  Serious: Yes (Hospitalization)
  Sender: FDA-Public Use
  Company Number: 2013-002349

PATIENT
  Age: 76 Year
  Sex: Female

DRUGS (1)
  1. MESALAZINE [Suspect]
     Indication: COLITIS ULCERATIVE
     Dosage: UNKNOWN, RECTAL

REACTIONS (2)
  - Rectal perforation [None]
  - Pneumoretroperitoneum [None]
